FAERS Safety Report 12768379 (Version 1)
Quarter: 2016Q3

REPORT INFORMATION
  Report Type: Spontaneous
  Country: US (occurrence: US)
  Receive Date: 20160921
  Receipt Date: 20160921
  Transmission Date: 20161109
  Serious: No
  Sender: FDA-Public Use
  Company Number: US-BRAINTREE LABORATORIES-160157

PATIENT
  Age: 58 Year
  Sex: Female

DRUGS (1)
  1. SUPREP BOWEL PREP [Suspect]
     Active Substance: MAGNESIUM SULFATE\POTASSIUM SULFATE\SODIUM SULFATE
     Indication: OFF LABEL USE
     Dosage: 2 X 6 OZ. BOTTLE
     Route: 048
     Dates: start: 20160224, end: 20160224

REACTIONS (4)
  - Abdominal pain [None]
  - Vomiting [None]
  - Wrong technique in product usage process [None]
  - Nausea [None]

NARRATIVE: CASE EVENT DATE: 20160224
